FAERS Safety Report 4660598-5 (Version None)
Quarter: 2005Q2

REPORT INFORMATION
  Report Type: 
  Country: None (occurrence: None)
  Receive Date: 20050512
  Receipt Date: 20050404
  Transmission Date: 20051028
  Serious: Yes (Hospitalization)
  Sender: FDA-Public Use
  Company Number: 2005UW05232

PATIENT
  Age: 77 Year
  Sex: Male
  Weight: 72.7 kg

DRUGS (3)
  1. PRILOSEC OTC [Suspect]
     Indication: DYSPEPSIA
     Route: 048
     Dates: start: 20030101
  2. METAMUCIL-2 [Concomitant]
     Route: 048
  3. VITAMINS [Concomitant]
     Route: 048

REACTIONS (1)
  - PNEUMONIA [None]
